FAERS Safety Report 11152461 (Version 1)
Quarter: 2015Q2

REPORT INFORMATION
  Report Type: Report from Study
  Country: NO (occurrence: NO)
  Receive Date: 20150601
  Receipt Date: 20150601
  Transmission Date: 20150821
  Serious: Yes (Other)
  Sender: FDA-Public Use
  Company Number: NO-GLAXOSMITHKLINE INC.-NO2015GSK039943

PATIENT
  Age: 33 Year
  Sex: Female
  Weight: 74 kg

DRUGS (5)
  1. DABRAFENIB [Suspect]
     Active Substance: DABRAFENIB
     Dosage: 75 UNK, UNK
     Dates: start: 20150416
  2. DICLOXACILLIN [Suspect]
     Active Substance: DICLOXACILLIN
  3. KLINDAMYCIN (CLINDAMYCIN PHOSPHATE) [Suspect]
     Active Substance: CLINDAMYCIN PHOSPHATE
     Indication: CLOSTRIDIUM DIFFICILE INFECTION
     Dosage: UNK
     Dates: start: 201412
  4. TRAMETINIB [Suspect]
     Active Substance: TRAMETINIB
     Indication: METASTATIC MALIGNANT MELANOMA
     Dosage: 2 MG, QD
     Dates: start: 20150110
  5. DABRAFENIB [Suspect]
     Active Substance: DABRAFENIB
     Indication: METASTATIC MALIGNANT MELANOMA
     Dosage: 150 MG, BID
     Dates: start: 20141218, end: 20150413

REACTIONS (9)
  - Diarrhoea [Recovered/Resolved]
  - Hyperaesthesia [Unknown]
  - Pyrexia [Unknown]
  - Clostridium difficile infection [Unknown]
  - Abdominal pain upper [Not Recovered/Not Resolved]
  - Erythema [Unknown]
  - Seizure [Unknown]
  - Rash [Unknown]
  - Dehydration [Unknown]

NARRATIVE: CASE EVENT DATE: 20150404
